FAERS Safety Report 7540160-7 (Version None)
Quarter: 2011Q2

REPORT INFORMATION
  Report Type: 
  Country: None (occurrence: None)
  Receive Date: 20110610
  Receipt Date: 20110526
  Transmission Date: 20111010
  Serious: Yes (Hospitalization)
  Sender: FDA-Public Use
  Company Number: US-JNJFOC-20110307393

PATIENT
  Sex: Female
  Weight: 67.13 kg

DRUGS (3)
  1. REMICADE [Suspect]
     Indication: RHEUMATOID ARTHRITIS
     Dosage: 3RD INFUSION
     Route: 042
     Dates: start: 20110309
  2. REMICADE [Suspect]
     Route: 042
     Dates: start: 20110101
  3. PREDNISONE [Concomitant]

REACTIONS (6)
  - PRURITUS GENERALISED [None]
  - INFUSION RELATED REACTION [None]
  - BLOOD PRESSURE IMMEASURABLE [None]
  - VOMITING [None]
  - PULSE PRESSURE DECREASED [None]
  - LOSS OF CONSCIOUSNESS [None]
